FAERS Safety Report 5288214-2 (Version None)
Quarter: 2007Q2

REPORT INFORMATION
  Report Type: 
  Country: None (occurrence: None)
  Receive Date: 20070405
  Receipt Date: 20070327
  Transmission Date: 20071010
  Serious: Yes (Death)
  Sender: FDA-Public Use
  Company Number: US-JNJFOC-20070307269

PATIENT
  Age: 25 Year
  Sex: Female

DRUGS (3)
  1. INVEGA [Suspect]
     Indication: DRUG USE FOR UNKNOWN INDICATION
     Route: 048
  2. CELEXA [Concomitant]
  3. PROPRANOLOL [Concomitant]

REACTIONS (1)
  - COMPLETED SUICIDE [None]
